FAERS Safety Report 15500327 (Version 1)
Quarter: 2018Q4

REPORT INFORMATION
  Report Type: Spontaneous
  Country: US (occurrence: US)
  Receive Date: 20181015
  Receipt Date: 20181015
  Transmission Date: 20190205
  Serious: No
  Sender: FDA-Public Use
  Company Number: US-DEPOMED, INC.-US-2017DEP001844

PATIENT

DRUGS (1)
  1. NUCYNTA ER [Suspect]
     Active Substance: TAPENTADOL HYDROCHLORIDE
     Indication: PAIN
     Dosage: UNK
     Dates: start: 201612, end: 201709

REACTIONS (3)
  - Pain [Unknown]
  - Drug dose titration not performed [Unknown]
  - Depressed mood [Unknown]

NARRATIVE: CASE EVENT DATE: 201709
